FAERS Safety Report 11824478 (Version 2)
Quarter: 2016Q1

REPORT INFORMATION
  Report Type: Spontaneous
  Country: AR (occurrence: AR)
  Receive Date: 20151210
  Receipt Date: 20160125
  Transmission Date: 20160525
  Serious: Yes (Other)
  Sender: FDA-Public Use
  Company Number: AR-PFIZER INC-2015420877

PATIENT
  Age: 65 Year
  Sex: Female

DRUGS (2)
  1. INLYTA [Suspect]
     Active Substance: AXITINIB
     Indication: RENAL CANCER
     Dosage: 10 MG, DAILY
     Dates: start: 20140717
  2. ZOLEDRONIC ACID [Suspect]
     Active Substance: ZOLEDRONIC ACID
     Dosage: UNK

REACTIONS (5)
  - Oral disorder [Not Recovered/Not Resolved]
  - Loose tooth [Not Recovered/Not Resolved]
  - Osteomyelitis [Recovered/Resolved]
  - Jaw disorder [Not Recovered/Not Resolved]
  - Osteonecrosis of jaw [Not Recovered/Not Resolved]

NARRATIVE: CASE EVENT DATE: 2014
